FAERS Safety Report 4452479-7 (Version None)
Quarter: 2004Q3

REPORT INFORMATION
  Report Type: 
  Country: None (occurrence: None)
  Receive Date: 20040916
  Receipt Date: 20040908
  Transmission Date: 20050211
  Serious: Yes (Hospitalization)
  Sender: FDA-Public Use
  Company Number: OMPQ-NO-0409S-1200

PATIENT
  Age: 61 Year
  Sex: Male

DRUGS (1)
  1. OMNIPAQUE 180 [Suspect]
     Indication: CALCULUS URINARY
     Dosage: 40 ML, SINGLE DOSE, I.V.
     Route: 042
     Dates: start: 20040906, end: 20040906

REACTIONS (6)
  - ASTHENIA [None]
  - DEPRESSED LEVEL OF CONSCIOUSNESS [None]
  - DISEASE PROGRESSION [None]
  - HEADACHE [None]
  - MUSCULAR WEAKNESS [None]
  - SOMNOLENCE [None]
